FAERS Safety Report 9723461 (Version 2)
Quarter: 2014Q2

REPORT INFORMATION
  Report Type: Report from Study
  Country: DE (occurrence: DE)
  Receive Date: 20131202
  Receipt Date: 20140602
  Transmission Date: 20141212
  Serious: Yes (Death, Life-Threatening)
  Sender: FDA-Public Use
  Company Number: DE-VERTEX PHARMACEUTICALS INC-2013-011470

PATIENT
  Sex: Male
  Weight: 77 kg

DRUGS (3)
  1. VX-950 (TELAPREVIR) [Suspect]
     Indication: HEPATITIS C
     Dosage: 2250 MG, QD
     Route: 048
     Dates: start: 20120224, end: 20120514
  2. PEGINTERFERON ALFA [Suspect]
     Indication: HEPATITIS C
     Dosage: 135 ?G, UNK
     Route: 058
     Dates: start: 20120517, end: 20121120
  3. RIBAVIRIN [Suspect]
     Indication: HEPATITIS C
     Dosage: 1000 MG, QD
     Route: 048
     Dates: start: 20120206, end: 20121120

REACTIONS (1)
  - Hepatic failure [Fatal]
